FAERS Safety Report 14586517 (Version 2)
Quarter: 2018Q2

REPORT INFORMATION
  Report Type: Spontaneous
  Country: FI (occurrence: FI)
  Receive Date: 20180301
  Receipt Date: 20180406
  Transmission Date: 20180711
  Serious: Yes (Other)
  Sender: FDA-Public Use
  Company Number: FI-SA-2015SA073310

PATIENT
  Age: 38 Year
  Sex: Female

DRUGS (11)
  1. LEMTRADA [Suspect]
     Active Substance: ALEMTUZUMAB
     Indication: RELAPSING-REMITTING MULTIPLE SCLEROSIS
     Route: 041
     Dates: start: 20150609, end: 20150611
  2. LEMTRADA [Suspect]
     Active Substance: ALEMTUZUMAB
     Indication: RELAPSING-REMITTING MULTIPLE SCLEROSIS
     Route: 041
     Dates: start: 20140602, end: 20140606
  3. CYMBALTA [Concomitant]
     Active Substance: DULOXETINE HYDROCHLORIDE
  4. LYRICA [Concomitant]
     Active Substance: PREGABALIN
  5. OPAMOX [Concomitant]
     Active Substance: OXAZEPAM
     Dosage: FOR NIGHT
     Route: 065
  6. PANADOL FORTE (ACETAMINOPHEN) [Concomitant]
     Active Substance: ACETAMINOPHEN
     Dosage: FREQUENCY: 1-3 TIMES/DAY
     Route: 065
  7. LYRICA [Concomitant]
     Active Substance: PREGABALIN
  8. RIVATRIL [Concomitant]
     Active Substance: CLONAZEPAM
     Route: 065
  9. LAMICTAL [Concomitant]
     Active Substance: LAMOTRIGINE
     Indication: NEURALGIA
  10. CIPRALEX [Concomitant]
     Active Substance: ESCITALOPRAM OXALATE
  11. CYMBALTA [Concomitant]
     Active Substance: DULOXETINE HYDROCHLORIDE

REACTIONS (15)
  - Visual impairment [Not Recovered/Not Resolved]
  - Depression [Unknown]
  - Basedow^s disease [Recovered/Resolved]
  - Hypothyroidism [Recovered/Resolved]
  - Accommodation disorder [Unknown]
  - Muscular weakness [Unknown]
  - Hypoaesthesia [Unknown]
  - Hypersomnia [Unknown]
  - Hyperthyroidism [Recovered/Resolved]
  - Paraesthesia [Not Recovered/Not Resolved]
  - Lymphocyte count decreased [Not Recovered/Not Resolved]
  - Nasopharyngitis [Not Recovered/Not Resolved]
  - Swelling [Not Recovered/Not Resolved]
  - Breast cancer [Unknown]
  - Fatigue [Recovered/Resolved]

NARRATIVE: CASE EVENT DATE: 2015
